FAERS Safety Report 5154447-9 (Version None)
Quarter: 2006Q4

REPORT INFORMATION
  Report Type: 
  Country: None (occurrence: None)
  Receive Date: 20061114
  Receipt Date: 20061102
  Transmission Date: 20070319
  Serious: Yes (Other)
  Sender: FDA-Public Use
  Company Number: 2006126727

PATIENT
  Age: 22 Year
  Sex: Female
  Weight: 83.2 kg

DRUGS (6)
  1. GENOTROPIN [Suspect]
     Indication: HYPOPITUITARISM
     Dosage: SEE IMAGE
     Route: 058
     Dates: start: 20050812
  2. CORTEF [Concomitant]
  3. LEVOTHYROXINE SODIUM [Concomitant]
  4. KLIMONORM (ESTRADIOL VALERATE, LEVONORGESTREL) [Concomitant]
  5. PARLODEL [Concomitant]
  6. AKTIFERRIN COMPOSITUM (CYANOCOBALAMIN, FERROUS SULFATE, FOLIC ACID, SE [Concomitant]

REACTIONS (4)
  - NEOPLASM PROGRESSION [None]
  - NERVE COMPRESSION [None]
  - OPTIC NERVE DISORDER [None]
  - PITUITARY TUMOUR BENIGN [None]
